FAERS Safety Report 12560963 (Version 1)
Quarter: 2016Q3

REPORT INFORMATION
  Report Type: Spontaneous
  Country: US (occurrence: None)
  Receive Date: 20160714
  Receipt Date: 20160714
  Transmission Date: 20161109
  Serious: Yes (Death)
  Sender: FDA-Public Use
  Company Number: None

PATIENT
  Age: 66 Year
  Sex: Male

DRUGS (12)
  1. TRACLEER [Suspect]
     Active Substance: BOSENTAN
     Indication: PULMONARY ARTERIAL HYPERTENSION
     Route: 048
     Dates: start: 201411, end: 201506
  2. KCL [Concomitant]
     Active Substance: POTASSIUM CHLORIDE
  3. HYDROCODONE BITARTRATE AND ACETAMINOPHEN [Concomitant]
     Active Substance: ACETAMINOPHEN\HYDROCODONE BITARTRATE
  4. TRACLEER [Suspect]
     Active Substance: BOSENTAN
     Indication: HEART DISEASE CONGENITAL
     Route: 048
     Dates: start: 201411, end: 201506
  5. ALBUTEROL. [Concomitant]
     Active Substance: ALBUTEROL
  6. LORAZEPAM. [Concomitant]
     Active Substance: LORAZEPAM
  7. TRACLEER [Suspect]
     Active Substance: BOSENTAN
     Indication: CONNECTIVE TISSUE DISORDER
     Route: 048
     Dates: start: 201411, end: 201506
  8. ENOXAPARIN [Concomitant]
     Active Substance: ENOXAPARIN
  9. FUROSEMIDE. [Concomitant]
     Active Substance: FUROSEMIDE
  10. TRAMADOL. [Concomitant]
     Active Substance: TRAMADOL
  11. TRACLEER [Suspect]
     Active Substance: BOSENTAN
     Indication: COR PULMONALE CHRONIC
     Route: 048
     Dates: start: 201411, end: 201506
  12. MORPHINE [Concomitant]
     Active Substance: MORPHINE

REACTIONS (6)
  - Lethargy [None]
  - Abdominal distension [None]
  - Rhonchi [None]
  - Oedema peripheral [None]
  - Respiratory distress [None]
  - Sepsis [None]

NARRATIVE: CASE EVENT DATE: 20160711
